FAERS Safety Report 4845400-0 (Version None)
Quarter: 2005Q4

REPORT INFORMATION
  Report Type: 
  Country: None (occurrence: None)
  Receive Date: 20051205
  Receipt Date: 20051124
  Transmission Date: 20060501
  Serious: Yes (Other)
  Sender: FDA-Public Use
  Company Number: CN-ABBOTT-05P-035-0318266-00

PATIENT
  Age: 7 Year
  Sex: Male

DRUGS (2)
  1. CEFZON FINE GRANULE [Suspect]
     Indication: UPPER RESPIRATORY TRACT INFLAMMATION
     Route: 048
     Dates: start: 20051105
  2. HERBAL PREPARATION [Concomitant]
     Indication: DRUG USE FOR UNKNOWN INDICATION

REACTIONS (2)
  - ASTHMA [None]
  - UPPER RESPIRATORY TRACT INFLAMMATION [None]
